FAERS Safety Report 5261986-9 (Version None)
Quarter: 2007Q1

REPORT INFORMATION
  Report Type: 
  Country: None (occurrence: None)
  Receive Date: 20070308
  Receipt Date: 20070228
  Transmission Date: 20070707
  Serious: Yes (Death, Other)
  Sender: FDA-Public Use
  Company Number: TPA2007A00055

PATIENT
  Age: 77 Year
  Sex: Male
  Weight: 95.2554 kg

DRUGS (9)
  1. ACTOS [Suspect]
     Indication: DIABETES MELLITUS NON-INSULIN-DEPENDENT
     Dosage: 15 MG, 1 IN 1 D, PER ORAL
     Route: 048
     Dates: start: 20061120, end: 20061128
  2. LISINOPRIL [Concomitant]
  3. AMIODARONE HCL [Concomitant]
  4. LIPITOR [Concomitant]
  5. GLUCOTROL [Concomitant]
  6. COUMADIN [Concomitant]
  7. BUMEX [Concomitant]
  8. COREG [Concomitant]
  9. ASPIRIN [Concomitant]

REACTIONS (3)
  - DYSPNOEA [None]
  - FLUID RETENTION [None]
  - WEIGHT INCREASED [None]
